FAERS Safety Report 7428010-0 (Version None)
Quarter: 2011Q2

REPORT INFORMATION
  Report Type: 
  Country: None (occurrence: None)
  Receive Date: 20110418
  Receipt Date: 20110418
  Transmission Date: 20111010
  Serious: Yes (Hospitalization)
  Sender: FDA-Public Use
  Company Number: None

PATIENT
  Age: 48 Year
  Sex: Female
  Weight: 73.4827 kg

DRUGS (1)
  1. AVELOX [Suspect]
     Indication: EAR INFECTION
     Dosage: 400 MG ONCE DAILY PO
     Route: 048
     Dates: start: 20110409, end: 20110412

REACTIONS (3)
  - MUSCULAR WEAKNESS [None]
  - TREMOR [None]
  - NERVE INJURY [None]
